FAERS Safety Report 4986474-6 (Version None)
Quarter: 2006Q2

REPORT INFORMATION
  Report Type: 
  Country: None (occurrence: None)
  Receive Date: 20060428
  Receipt Date: 20060417
  Transmission Date: 20061013
  Serious: Yes (Other)
  Sender: FDA-Public Use
  Company Number: US-ROCHE-444905

PATIENT
  Age: 17 Year
  Sex: Male

DRUGS (1)
  1. ACCUTANE [Suspect]
     Route: 048
     Dates: end: 20050315

REACTIONS (4)
  - ANXIETY [None]
  - ASTHMA [None]
  - DEPRESSION [None]
  - ILL-DEFINED DISORDER [None]
